FAERS Safety Report 13817627 (Version 1)
Quarter: 2017Q3

REPORT INFORMATION
  Report Type: Spontaneous
  Country: US (occurrence: US)
  Receive Date: 20170731
  Receipt Date: 20170731
  Transmission Date: 20171127
  Serious: Yes (Other)
  Sender: FDA-Public Use
  Company Number: US-BAYER-2017-145183

PATIENT
  Age: 23 Year
  Sex: Female

DRUGS (1)
  1. MIRENA [Suspect]
     Active Substance: LEVONORGESTREL
     Dosage: 20 MCG/24HR, CONT
     Route: 015
     Dates: start: 20160106

REACTIONS (10)
  - Nausea [None]
  - Transient ischaemic attack [None]
  - Vomiting [None]
  - Tinnitus [None]
  - Vision blurred [None]
  - Migraine [None]
  - Dizziness [None]
  - Pregnancy with contraceptive device [None]
  - Hypoaesthesia [None]
  - Drug ineffective [None]

NARRATIVE: CASE EVENT DATE: 20160719
